FAERS Safety Report 7373361 (Version 6)
Quarter: 2019Q1

REPORT INFORMATION
  Report Type: Spontaneous
  Country: US (occurrence: US)
  Receive Date: 20100503
  Receipt Date: 20190211
  Transmission Date: 20190418
  Serious: Yes (Disabling, Other)
  Sender: FDA-Public Use
  Company Number: US-ASTRAZENECA-2010SE08198

PATIENT
  Age: 51 Year
  Sex: Female
  Weight: 81.6 kg

DRUGS (25)
  1. NEXIUM [Interacting]
     Active Substance: ESOMEPRAZOLE MAGNESIUM
     Route: 048
     Dates: start: 2002, end: 20111223
  2. ATACAND [Suspect]
     Active Substance: CANDESARTAN CILEXETIL
     Route: 048
  3. PREDNISONE. [Concomitant]
     Active Substance: PREDNISONE
  4. XANAX [Concomitant]
     Active Substance: ALPRAZOLAM
  5. VITAMIN B3 [Concomitant]
     Active Substance: NIACIN
  6. PRILOSEC OTC [Suspect]
     Active Substance: OMEPRAZOLE MAGNESIUM
     Route: 048
  7. ZETIA [Suspect]
     Active Substance: EZETIMIBE
     Route: 065
     Dates: start: 2004, end: 201003
  8. PREDNISONE. [Concomitant]
     Active Substance: PREDNISONE
     Dosage: AS NEEDED
  9. PROGESTERINE IUD [Concomitant]
     Indication: ENDOMETRIAL THICKENING
  10. ZITHROMAX [Concomitant]
     Active Substance: AZITHROMYCIN DIHYDRATE
     Indication: SINUSITIS
     Dates: end: 20050227
  11. LIPITOR [Concomitant]
     Active Substance: ATORVASTATIN CALCIUM
  12. CRESTOR [Interacting]
     Active Substance: ROSUVASTATIN CALCIUM
     Indication: BLOOD CHOLESTEROL INCREASED
     Dosage: 7.5MG UNKNOWN
     Route: 048
  13. CRESTOR [Interacting]
     Active Substance: ROSUVASTATIN CALCIUM
     Indication: BLOOD CHOLESTEROL INCREASED
     Dosage: GENERIC UNKNOWN
     Route: 048
  14. NEXIUM [Interacting]
     Active Substance: ESOMEPRAZOLE MAGNESIUM
     Dosage: TWO TIMES A DAY
     Route: 048
  15. CRESTOR [Interacting]
     Active Substance: ROSUVASTATIN CALCIUM
     Indication: BLOOD CHOLESTEROL INCREASED
     Dosage: UNKNOWN
     Route: 048
     Dates: start: 20050201, end: 20050227
  16. CRESTOR [Interacting]
     Active Substance: ROSUVASTATIN CALCIUM
     Indication: BLOOD CHOLESTEROL INCREASED
     Dosage: EVERY OTHER DAY UNKNOWN
     Route: 048
  17. VERELAN [Concomitant]
     Active Substance: VERAPAMIL HYDROCHLORIDE
  18. NEXIUM [Interacting]
     Active Substance: ESOMEPRAZOLE MAGNESIUM
     Dosage: ONCE A DAY
     Route: 048
  19. MEVACOR [Concomitant]
     Active Substance: LOVASTATIN
  20. CRESTOR [Interacting]
     Active Substance: ROSUVASTATIN CALCIUM
     Indication: BLOOD CHOLESTEROL INCREASED
     Dosage: 5.0MG UNKNOWN
     Route: 048
     Dates: end: 201108
  21. CRESTOR [Interacting]
     Active Substance: ROSUVASTATIN CALCIUM
     Indication: BLOOD CHOLESTEROL INCREASED
     Dosage: 10.0MG UNKNOWN
     Route: 048
  22. KEFLEX [Suspect]
     Active Substance: CEPHALEXIN
     Route: 065
  23. NEXIUM [Suspect]
     Active Substance: ESOMEPRAZOLE MAGNESIUM
     Dosage: ONCE A DAY
     Route: 048
     Dates: start: 2004
  24. CRESTOR [Interacting]
     Active Substance: ROSUVASTATIN CALCIUM
     Indication: BLOOD CHOLESTEROL INCREASED
     Dosage: 5.0MG UNKNOWN
     Route: 048
     Dates: start: 2004
  25. CRESTOR [Interacting]
     Active Substance: ROSUVASTATIN CALCIUM
     Indication: BLOOD CHOLESTEROL INCREASED
     Dosage: 2.5MG UNKNOWN
     Route: 048

REACTIONS (37)
  - Muscle disorder [Unknown]
  - Herpes zoster [Unknown]
  - Abdominal pain upper [Unknown]
  - Gastric disorder [Unknown]
  - Myalgia [Recovered/Resolved]
  - Malaise [Recovered/Resolved]
  - Fractured coccyx [Unknown]
  - Flushing [Recovering/Resolving]
  - 21-hydroxylase deficiency [Unknown]
  - Vision blurred [Recovering/Resolving]
  - Blood cholesterol abnormal [Unknown]
  - Weight decreased [Unknown]
  - Pain in extremity [Unknown]
  - Off label use [Unknown]
  - Pain in extremity [Recovering/Resolving]
  - Musculoskeletal pain [Not Recovered/Not Resolved]
  - Fatigue [Unknown]
  - Malaise [Recovering/Resolving]
  - Arthralgia [Not Recovered/Not Resolved]
  - Nausea [Recovered/Resolved]
  - Fall [Unknown]
  - Insomnia [Unknown]
  - Somnolence [Unknown]
  - Intentional product misuse [Unknown]
  - Injury [Unknown]
  - Pain [Unknown]
  - Sinusitis [Recovering/Resolving]
  - Endometrial thickening [Unknown]
  - Constipation [Unknown]
  - Vomiting [Recovered/Resolved]
  - Adverse drug reaction [Unknown]
  - Adverse event [Unknown]
  - Drug interaction [Unknown]
  - Tendon rupture [Unknown]
  - Musculoskeletal chest pain [Recovered/Resolved]
  - Asthenia [Unknown]
  - Ill-defined disorder [Unknown]

NARRATIVE: CASE EVENT DATE: 2004
